FAERS Safety Report 6395483-4 (Version None)
Quarter: 2009Q4

REPORT INFORMATION
  Report Type: 
  Country: None (occurrence: None)
  Receive Date: 20091009
  Receipt Date: 20090929
  Transmission Date: 20100525
  Serious: Yes (Other)
  Sender: FDA-Public Use
  Company Number: FI-JNJFOC-20090802881

PATIENT
  Age: 63 Year
  Sex: Male
  Weight: 120 kg

DRUGS (2)
  1. REMICADE [Suspect]
     Indication: PYODERMA GANGRENOSUM
     Dosage: TOTAL OF 3 DOSES
     Route: 042
     Dates: start: 20090306, end: 20090401
  2. AZAMUN [Suspect]
     Indication: DRUG USE FOR UNKNOWN INDICATION

REACTIONS (1)
  - HEPATIC ENZYME INCREASED [None]
